FAERS Safety Report 5536904-6 (Version None)
Quarter: 2007Q4

REPORT INFORMATION
  Report Type: 
  Country: None (occurrence: None)
  Receive Date: 20071207
  Receipt Date: 20071126
  Transmission Date: 20080405
  Serious: Yes (Other)
  Sender: FDA-Public Use
  Company Number: PHBS2007JP20110

PATIENT
  Weight: 50 kg

DRUGS (2)
  1. NEORAL [Suspect]
     Indication: LUPUS NEPHRITIS
     Dosage: 100 MG/DAY
     Route: 048
  2. STEROIDS NOS [Concomitant]
     Dosage: 40 MG
     Route: 048

REACTIONS (2)
  - LARGE INTESTINAL ULCER [None]
  - LOWER GASTROINTESTINAL HAEMORRHAGE [None]
